FAERS Safety Report 6049163-5 (Version None)
Quarter: 2009Q1

REPORT INFORMATION
  Report Type: 
  Country: None (occurrence: None)
  Receive Date: 20090123
  Receipt Date: 20090112
  Transmission Date: 20090719
  Serious: Yes (Other)
  Sender: FDA-Public Use
  Company Number: TR-ELI_LILLY_AND_COMPANY-TR200901002294

PATIENT
  Age: 34 Year
  Sex: Female

DRUGS (2)
  1. ZYPREXA [Suspect]
     Indication: MAJOR DEPRESSION
     Dosage: 10 MG, DAILY (1/D)
     Route: 065
  2. ESCITALOPRAM [Concomitant]
     Indication: MAJOR DEPRESSION
     Dosage: 10 MG, DAILY (1/D)
     Route: 065

REACTIONS (2)
  - ATRIAL THROMBOSIS [None]
  - PULMONARY EMBOLISM [None]
